FAERS Safety Report 16462846 (Version 1)
Quarter: 2019Q3

REPORT INFORMATION
  Report Type: Spontaneous
  Country: US (occurrence: US)
  Receive Date: 20190620
  Receipt Date: 20190620
  Transmission Date: 20191004
  Serious: Yes (Life-Threatening, Disabling)
  Sender: FDA-Public Use
  Company Number: None

PATIENT
  Age: 51 Year
  Sex: Female
  Weight: 76.5 kg

DRUGS (18)
  1. ZEGERID [Concomitant]
     Active Substance: OMEPRAZOLE\SODIUM BICARBONATE
  2. PERCOCET [Concomitant]
     Active Substance: ACETAMINOPHEN\OXYCODONE HYDROCHLORIDE
  3. MG [Concomitant]
     Active Substance: MAGNESIUM
  4. TIZANIDINE. [Concomitant]
     Active Substance: TIZANIDINE
  5. BEROCCA [Concomitant]
     Active Substance: VITAMINS
  6. VYVANZE [Concomitant]
  7. CALCITRIOL. [Concomitant]
     Active Substance: CALCITRIOL
  8. IMODIUM [Concomitant]
     Active Substance: LOPERAMIDE HYDROCHLORIDE
  9. ARMOUR THYROID [Suspect]
     Active Substance: THYROID, PORCINE
     Indication: THYROID HORMONE REPLACEMENT THERAPY
     Dosage: ?          QUANTITY:60 TABLET(S);?
     Route: 048
     Dates: start: 20180522, end: 20181013
  10. ARMOUR THYROID [Suspect]
     Active Substance: THYROID, PORCINE
     Indication: HYPOTHYROIDISM
     Dosage: ?          QUANTITY:30 TABLET(S);?
     Route: 048
     Dates: start: 20180530, end: 20181012
  11. FIORCET [Concomitant]
  12. DEPLIN [Concomitant]
     Active Substance: LEVOMEFOLATE CALCIUM
  13. ARMOUR THYROID [Concomitant]
     Active Substance: THYROID, PORCINE
  14. UNITHYROID [Concomitant]
  15. YYNELOL [Concomitant]
  16. B6 [Concomitant]
     Active Substance: PYRIDOXINE HYDROCHLORIDE
  17. MOLTRIN [Concomitant]
  18. BREO ELLIPTA [Concomitant]
     Active Substance: FLUTICASONE FUROATE\VILANTEROL TRIFENATATE

REACTIONS (6)
  - Product complaint [None]
  - Product storage error [None]
  - Poor quality product administered [None]
  - Hypothyroidism [None]
  - Manufacturing materials issue [None]
  - Gastrointestinal disorder [None]

NARRATIVE: CASE EVENT DATE: 20181030
